FAERS Safety Report 6757913-5 (Version None)
Quarter: 2010Q2

REPORT INFORMATION
  Report Type: 
  Country: None (occurrence: None)
  Receive Date: 20100607
  Receipt Date: 20100602
  Transmission Date: 20101027
  Serious: Yes (Death, Hospitalization, Other)
  Sender: FDA-Public Use
  Company Number: AT-BRISTOL-MYERS SQUIBB COMPANY-15123821

PATIENT
  Age: 49 Year
  Sex: Male
  Weight: 69 kg

DRUGS (6)
  1. CISPLATIN [Suspect]
     Indication: NON-SMALL CELL LUNG CANCER
     Dosage: LAST INF ON 06APR2010
     Route: 042
     Dates: start: 20091130
  2. PEMETREXED DISODIUM [Suspect]
     Indication: NON-SMALL CELL LUNG CANCER
     Dosage: LAST INF ON 06APR2010
     Route: 042
     Dates: start: 20091130
  3. DICLOFENAC [Concomitant]
  4. FOLSAN [Concomitant]
  5. LANSOPRAZOLE [Concomitant]
     Dosage: 1 DF=30 UNITS NOT SPECIFIED
  6. DEXAMETHASONE [Concomitant]
     Dates: start: 20100510

REACTIONS (2)
  - CEREBRAL ISCHAEMIA [None]
  - HEMIPLEGIA [None]
